FAERS Safety Report 6394396-1 (Version None)
Quarter: 2009Q4

REPORT INFORMATION
  Report Type: 
  Country: None (occurrence: None)
  Receive Date: 20091006
  Receipt Date: 20090930
  Transmission Date: 20100525
  Serious: Yes (Other)
  Sender: FDA-Public Use
  Company Number: 2009S1000309-001

PATIENT
  Age: 75 Year
  Sex: Female

DRUGS (4)
  1. PITAVASTATIN CALCIUM [Suspect]
     Dosage: 1MG PO
     Route: 048
     Dates: start: 20090911, end: 20090921
  2. OLMESARTAN MEDOXOMIL [Concomitant]
  3. DOMPERIDONE [Concomitant]
  4. SODIUM AZULENE SULFONATE_L-GLUTAMINE [Concomitant]

REACTIONS (2)
  - LOSS OF CONSCIOUSNESS [None]
  - SOMNOLENCE [None]
